FAERS Safety Report 18833657 (Version 1)
Quarter: 2021Q1

REPORT INFORMATION
  Report Type: Spontaneous
  Country: US (occurrence: US)
  Receive Date: 20210203
  Receipt Date: 20210203
  Transmission Date: 20210419
  Serious: No
  Sender: FDA-Public Use
  Company Number: US-ALLERGAN-2005539US

PATIENT
  Sex: Female

DRUGS (1)
  1. BOTOX [Suspect]
     Active Substance: ONABOTULINUMTOXINA
     Indication: MIGRAINE
     Dosage: UNK UNK, SINGLE
     Route: 065
     Dates: start: 20200130, end: 20200130

REACTIONS (10)
  - Feeling drunk [Unknown]
  - Vision blurred [Recovered/Resolved]
  - Balance disorder [Unknown]
  - Dizziness [Unknown]
  - Confusional state [Unknown]
  - Asthenia [Unknown]
  - Neck pain [Unknown]
  - Diplopia [Recovered/Resolved]
  - Vertigo [Recovered/Resolved]
  - Malaise [Unknown]

NARRATIVE: CASE EVENT DATE: 20200130
